FAERS Safety Report 7814872-1 (Version None)
Quarter: 2011Q4

REPORT INFORMATION
  Report Type: 
  Country: None (occurrence: None)
  Receive Date: 20111014
  Receipt Date: 20111011
  Transmission Date: 20120403
  Serious: No
  Sender: FDA-Public Use
  Company Number: US-PFIZER INC-2011242885

PATIENT
  Sex: Female
  Weight: 89.796 kg

DRUGS (5)
  1. PLAVIX [Concomitant]
     Dosage: UNK
  2. MOBIC [Concomitant]
     Indication: ARTHRITIS
     Dosage: UNK
  3. CITALOPRAM [Concomitant]
     Indication: AFFECTIVE DISORDER
     Dosage: UNK
  4. NEXIUM [Concomitant]
     Indication: GASTROOESOPHAGEAL REFLUX DISEASE
     Dosage: UNK
  5. FLAGYL [Suspect]
     Indication: DIVERTICULITIS
     Dosage: UNK, 2X/DAY
     Route: 048
     Dates: end: 20111006

REACTIONS (1)
  - HAEMORRHOIDS [None]
